FAERS Safety Report 19989597 (Version 1)
Quarter: 2021Q4

REPORT INFORMATION
  Report Type: Spontaneous
  Country: FR (occurrence: FR)
  Receive Date: 20211025
  Receipt Date: 20211025
  Transmission Date: 20220303
  Serious: Yes (Life-Threatening)
  Sender: FDA-Public Use
  Company Number: None

PATIENT
  Age: 72 Year
  Sex: Male
  Weight: 74 kg

DRUGS (8)
  1. METHOTREXATE [Suspect]
     Active Substance: METHOTREXATE
     Indication: Cutaneous lymphoma
     Dosage: 20 MG
     Route: 058
     Dates: start: 202105, end: 20210913
  2. ELIQUIS [Suspect]
     Active Substance: APIXABAN
     Indication: Thrombosis prophylaxis
     Dosage: 10 MG, THERAPY START DATE: ASKU
     Route: 048
     Dates: end: 202109
  3. FOLIC ACID [Concomitant]
     Active Substance: FOLIC ACID
     Dosage: 15 MG, THERAPY START DATE: ASKU
     Route: 048
  4. FUROSEMIDE [Concomitant]
     Active Substance: FUROSEMIDE
     Dosage: UNKNOWN, THERAPY START DATE: ASKU
     Route: 048
  5. JANUMET [Concomitant]
     Active Substance: METFORMIN HYDROCHLORIDE\SITAGLIPTIN PHOSPHATE
     Dosage: 2 DF, THERAPY START AND END DATE: ASKU, 50 MG/1000 MG
     Route: 048
  6. PREGABALIN [Concomitant]
     Active Substance: PREGABALIN
     Dosage: 200 MG, THERAPY START DATE: ASKU
     Route: 048
  7. NOVORAPID [Concomitant]
     Active Substance: INSULIN ASPART
     Dosage: UNKNOWN, THERAPY START DATE: ASKU
     Route: 058
  8. LANTUS [Concomitant]
     Active Substance: INSULIN GLARGINE
     Dosage: 20 IU, THERAPY START DATE: ASKU
     Route: 058

REACTIONS (1)
  - Interstitial lung disease [Recovering/Resolving]

NARRATIVE: CASE EVENT DATE: 20210908
